FAERS Safety Report 4577224-6 (Version None)
Quarter: 2005Q1

REPORT INFORMATION
  Report Type: 
  Country: None (occurrence: None)
  Receive Date: 20050209
  Receipt Date: 20050126
  Transmission Date: 20050727
  Serious: Yes (Death)
  Sender: FDA-Public Use
  Company Number: 2004AL000704

PATIENT
  Age: 15 Year
  Sex: Male

DRUGS (7)
  1. IBUPROFEN [Suspect]
     Dosage: PO
     Route: 048
  2. IBUPROFEN ORAL SUSPENSION USP, 100 MG/5 ML (OTC) (ALPHARMA) [Suspect]
     Dosage: PO
     Route: 048
  3. ACETAMINOPHEN [Suspect]
     Dosage: PO
     Route: 048
  4. ACETAMINOPHEN [Suspect]
     Dosage: PO
     Route: 048
  5. NORTRIPTYLINE HCL [Suspect]
     Dosage: PO
     Route: 048
  6. AMOXICILLIN [Suspect]
     Dosage: PO
     Route: 048
  7. MELATONIN [Suspect]
     Dosage: PO
     Route: 048

REACTIONS (5)
  - COMPLETED SUICIDE [None]
  - CONVULSION [None]
  - INTENTIONAL MISUSE [None]
  - RESUSCITATION [None]
  - VENTRICULAR ARRHYTHMIA [None]
